FAERS Safety Report 6437241-8 (Version None)
Quarter: 2009Q4

REPORT INFORMATION
  Report Type: 
  Country: None (occurrence: None)
  Receive Date: 20091112
  Receipt Date: 20091104
  Transmission Date: 20100525
  Serious: Yes (Other)
  Sender: FDA-Public Use
  Company Number: US-JNJCH-2009025480

PATIENT
  Sex: Female
  Weight: 56.2 kg

DRUGS (2)
  1. ROGAINE [Suspect]
     Indication: ALOPECIA
     Dosage: TEXT:1/2 CAPFUL 2X A DAY
     Route: 061
     Dates: start: 20090917, end: 20090922
  2. ANTIHYPERTENSIVES [Concomitant]
     Indication: HYPERTENSION
     Dosage: TEXT:UNSPECIFIED
     Route: 048

REACTIONS (7)
  - BALANCE DISORDER [None]
  - CONSTIPATION [None]
  - DYSSTASIA [None]
  - GAIT DISTURBANCE [None]
  - HEADACHE [None]
  - WEIGHT INCREASED [None]
  - WRONG DRUG ADMINISTERED [None]
